FAERS Safety Report 4304220-6 (Version None)
Quarter: 2004Q1

REPORT INFORMATION
  Report Type: 
  Country: None (occurrence: None)
  Receive Date: 20040225
  Receipt Date: 20021206
  Transmission Date: 20041129
  Serious: Yes (Hospitalization)
  Sender: FDA-Public Use
  Company Number: WAES 0212AUS00045

PATIENT
  Age: 72 Year
  Sex: Female

DRUGS (6)
  1. [COMPOSITION UNSPECIFIED] [Concomitant]
  2. ALBUTEROL [Concomitant]
  3. IPRATROPIUM BROMIDE [Concomitant]
  4. ZOCOR [Suspect]
     Route: 048
  5. ZOCOR [Suspect]
     Route: 048
     Dates: start: 20020101
  6. TRAMADOL MSD [Suspect]

REACTIONS (3)
  - BLOOD CREATINE INCREASED [None]
  - DRUG INTERACTION [None]
  - RHABDOMYOLYSIS [None]
